FAERS Safety Report 9863397 (Version 3)
Quarter: 2014Q2

REPORT INFORMATION
  Report Type: Report from Study
  Country: US (occurrence: US)
  Receive Date: 20140203
  Receipt Date: 20140508
  Transmission Date: 20141212
  Serious: Yes (Other)
  Sender: FDA-Public Use
  Company Number: PHEH2014US002310

PATIENT
  Sex: Female

DRUGS (12)
  1. TASIGNA [Suspect]
     Indication: CHRONIC MYELOID LEUKAEMIA
     Dosage: 300 MG, BID
     Route: 048
     Dates: start: 2010
  2. TASIGNA [Suspect]
     Dosage: 300 MG, QD
     Route: 048
     Dates: start: 20130530
  3. LOSARTAN [Concomitant]
  4. TRAMADOL [Concomitant]
  5. SYMBICORT [Concomitant]
  6. CALCIUM [Concomitant]
  7. COD LIVER OIL [Concomitant]
  8. FISH OIL [Concomitant]
  9. CO-ENZYME Q10 [Concomitant]
  10. ONDANSETRON [Concomitant]
  11. CLONIDINE [Concomitant]
  12. TYLENOL [Concomitant]

REACTIONS (7)
  - Glaucoma [Not Recovered/Not Resolved]
  - Cataract [Not Recovered/Not Resolved]
  - Tinnitus [Not Recovered/Not Resolved]
  - Skin burning sensation [Not Recovered/Not Resolved]
  - Gastrooesophageal reflux disease [Not Recovered/Not Resolved]
  - Arthralgia [Unknown]
  - Dyspnoea [Not Recovered/Not Resolved]
